FAERS Safety Report 7674888-5 (Version None)
Quarter: 2011Q3

REPORT INFORMATION
  Report Type: 
  Country: None (occurrence: None)
  Receive Date: 20110810
  Receipt Date: 20110728
  Transmission Date: 20111222
  Serious: Yes (Hospitalization)
  Sender: FDA-Public Use
  Company Number: CA-ELI_LILLY_AND_COMPANY-CA201107007580

PATIENT
  Sex: Male

DRUGS (10)
  1. ZYPREXA [Suspect]
     Indication: PSYCHOTIC DISORDER
     Dosage: 2.5 MG, QD
     Dates: start: 20040723
  2. ZYPREXA [Suspect]
     Dosage: 5 MG, QD
  3. ZYPREXA ZYDIS [Suspect]
     Indication: PSYCHOTIC DISORDER
     Dosage: 5 MG, UNK
  4. SERTRALINE HYDROCHLORIDE [Concomitant]
  5. FLUOXETINE [Concomitant]
  6. QUETIAPINE [Concomitant]
  7. RISPERIDONE [Concomitant]
  8. CELEXA [Concomitant]
  9. CLONAZEPAM [Concomitant]
  10. EFFEXOR [Concomitant]

REACTIONS (2)
  - TYPE 2 DIABETES MELLITUS [None]
  - WEIGHT INCREASED [None]
